FAERS Safety Report 21886681 (Version 1)
Quarter: 2023Q1

REPORT INFORMATION
  Report Type: Report from Study
  Country: US (occurrence: US)
  Receive Date: 20230119
  Receipt Date: 20230119
  Transmission Date: 20230418
  Serious: No
  Sender: FDA-Public Use
  Company Number: US-ABBVIE-4272750

PATIENT
  Age: 53 Year
  Sex: Female

DRUGS (3)
  1. HUMIRA [Suspect]
     Active Substance: ADALIMUMAB
     Indication: Rheumatoid arthritis
     Route: 058
     Dates: start: 20221217
  2. HUMIRA [Suspect]
     Active Substance: ADALIMUMAB
     Dosage: LAST ADM DATE: 2022
     Route: 058
     Dates: start: 20210915
  3. Covid-19 Vaccine [Concomitant]
     Indication: COVID-19 immunisation
     Dosage: BOOSTER DOSE
     Route: 030

REACTIONS (5)
  - Herpes zoster [Recovered/Resolved]
  - Memory impairment [Unknown]
  - Fibromyalgia [Unknown]
  - Respiratory tract infection viral [Recovered/Resolved]
  - Menopause [Unknown]

NARRATIVE: CASE EVENT DATE: 20220715
